FAERS Safety Report 13394130 (Version 3)
Quarter: 2017Q3

REPORT INFORMATION
  Report Type: Report from Study
  Country: US (occurrence: US)
  Receive Date: 20170401
  Receipt Date: 20170815
  Transmission Date: 20171127
  Serious: Yes (Hospitalization, Other)
  Sender: FDA-Public Use
  Company Number: US-ROCHE-1872923

PATIENT
  Age: 50 Year
  Sex: Male
  Weight: 83 kg

DRUGS (3)
  1. IBRUTINIB [Suspect]
     Active Substance: IBRUTINIB
     Indication: CHRONIC LYMPHOCYTIC LEUKAEMIA
     Dosage: THE DATE OF THE MOST RECENT DOSE OF IBRUTNIB 420 MG PRIOR TO SAE ONSET WAS ADMINISTERED ON 23/DEC/20
     Route: 048
     Dates: start: 20161026
  2. VENETOCLAX. [Suspect]
     Active Substance: VENETOCLAX
     Indication: CHRONIC LYMPHOCYTIC LEUKAEMIA
     Dosage: THE DATE OF THE MOST RECENT DOSE OF VENETOCLAX 400 MG PRIOR TO SAE ONSET WAS ADMINISTERED ON 23/DEC/
     Route: 048
     Dates: start: 20161123
  3. OBINUTUZUMAB. [Suspect]
     Active Substance: OBINUTUZUMAB
     Indication: CHRONIC LYMPHOCYTIC LEUKAEMIA
     Dosage: THE DATE OF THE MOST RECENT DOSE OF OBINUTUZUMAB 1000 MG PRIOR TO SAE ONSET WAS ADMINISTERED ON 23/D
     Route: 042
     Dates: start: 20160928, end: 20170503

REACTIONS (3)
  - Neutrophil count decreased [Not Recovered/Not Resolved]
  - Febrile neutropenia [Unknown]
  - Upper respiratory tract infection [Recovering/Resolving]

NARRATIVE: CASE EVENT DATE: 20161223
